FAERS Safety Report 12720534 (Version 1)
Quarter: 2016Q3

REPORT INFORMATION
  Report Type: Report from Study
  Country: IE (occurrence: IE)
  Receive Date: 20160907
  Receipt Date: 20160907
  Transmission Date: 20161109
  Serious: Yes (Death)
  Sender: FDA-Public Use
  Company Number: IE-AMGEN-IRLSL2016119083

PATIENT
  Age: 71 Year
  Sex: Female

DRUGS (19)
  1. NEULASTA [Suspect]
     Active Substance: PEGFILGRASTIM
     Indication: LUNG NEOPLASM MALIGNANT
     Dosage: 6 MG, Q3WK (POST CHEMOTHERAPY 3 WEEKLY CYCLE)
     Route: 058
     Dates: start: 20160811
  2. ELTROXIN [Concomitant]
     Active Substance: LEVOTHYROXINE
     Dosage: 100 MG, QD (ONCE DAILY)
     Route: 050
  3. LIPITOR [Concomitant]
     Active Substance: ATORVASTATIN CALCIUM
     Dosage: 20 MG, QD (ONCE DAILY)
     Route: 050
  4. SENNA [Concomitant]
     Active Substance: SENNA LEAF\SENNOSIDES\SENNOSIDES A AND B
     Dosage: 2 MG, QD (ONCE DAILY)
     Route: 050
  5. PALLADONE [Concomitant]
     Active Substance: HYDROMORPHONE HYDROCHLORIDE
     Dosage: 3 MG, QID (Q.D.S)
     Route: 050
  6. PANTOPRAZOLE [Concomitant]
     Active Substance: PANTOPRAZOLE SODIUM
     Dosage: 40 MG, QD (ONCE DAILY)
     Route: 050
  7. DEXAMETHASONE. [Concomitant]
     Active Substance: DEXAMETHASONE
     Dosage: 4 MG, BID (B.D)
     Route: 050
  8. LIDOCAINE. [Concomitant]
     Active Substance: LIDOCAINE
     Dosage: 5 UNK, QD (5 N/A, ONCE DAILY)
     Route: 050
  9. INNOHEP [Concomitant]
     Active Substance: TINZAPARIN SODIUM
     Dosage: 14000 MG, QD (ONCE DAILY)
     Route: 050
  10. DOCUSATE [Concomitant]
     Active Substance: DOCUSATE
     Dosage: 200 MG, BID (B.D)
     Route: 050
  11. PREGABALIN. [Concomitant]
     Active Substance: PREGABALIN
     Dosage: 75 MG, BID (B.D)
     Route: 050
  12. MOVICOL [Concomitant]
     Active Substance: POLYETHYLENE GLYCOL 3350\POTASSIUM CHLORIDE\SODIUM BICARBONATE\SODIUM CHLORIDE
     Dosage: 1 UNK, BID (1 N/A, B.D)
     Route: 050
  13. PIRITON [Concomitant]
     Active Substance: CHLORPHENIRAMINE MALEATE
     Dosage: 4 MG, TID (T.D.S)
     Route: 050
  14. CYCLIZINE [Concomitant]
     Active Substance: CYCLIZINE
     Dosage: 50 MG, BID (B.D)
     Route: 050
  15. ZOFRAN [Concomitant]
     Active Substance: ONDANSETRON HYDROCHLORIDE
     Dosage: 4 MG, TID (T.D.S)
     Route: 050
  16. EFFENTORA [Concomitant]
     Active Substance: FENTANYL CITRATE
     Dosage: 200 MG, QID (Q.D.S)
     Route: 050
  17. FOLIC ACID. [Concomitant]
     Active Substance: FOLIC ACID
     Dosage: 400 MUG, QD (400 MCG, ONCE DAILY)
     Route: 050
  18. FENTANYL. [Concomitant]
     Active Substance: FENTANYL
     Dosage: 25 MUG, UNK (25 MCG, EVERY THREE DAYS)
     Route: 050
  19. VALTREX [Concomitant]
     Active Substance: VALACYCLOVIR HYDROCHLORIDE
     Dosage: 500 MG, QD (ONCE DAILY)
     Route: 050

REACTIONS (1)
  - Death [Fatal]

NARRATIVE: CASE EVENT DATE: 20160831
